FAERS Safety Report 7952635-7 (Version None)
Quarter: 2011Q4

REPORT INFORMATION
  Report Type: 
  Country: None (occurrence: None)
  Receive Date: 20111201
  Receipt Date: 20111123
  Transmission Date: 20120403
  Serious: Yes (Other)
  Sender: FDA-Public Use
  Company Number: US-JNJFOC-20111101545

PATIENT
  Sex: Male
  Weight: 94.8 kg

DRUGS (6)
  1. CEFAZOLIN [Concomitant]
     Indication: PROPHYLAXIS
     Dates: start: 20111031, end: 20111102
  2. MORPHINE SULFATE [Concomitant]
     Route: 030
  3. DILAUDID [Concomitant]
     Indication: PAIN
  4. GENTAMICIN [Concomitant]
     Dates: start: 20111031
  5. XARELTO [Suspect]
     Indication: KNEE ARTHROPLASTY
     Route: 048
     Dates: start: 20111031, end: 20111101
  6. PERCOCET [Concomitant]
     Indication: PAIN

REACTIONS (1)
  - DEEP VEIN THROMBOSIS [None]
